FAERS Safety Report 5154014-7 (Version None)
Quarter: 2006Q4

REPORT INFORMATION
  Report Type: 
  Country: None (occurrence: None)
  Receive Date: 20061120
  Receipt Date: 20061025
  Transmission Date: 20070319
  Serious: Yes (Hospitalization)
  Sender: FDA-Public Use
  Company Number: 2006JP004280

PATIENT
  Age: 80 Year
  Sex: Female

DRUGS (2)
  1. CEFAMEZIN [Suspect]
     Indication: INFECTION PROPHYLAXIS
     Dosage: 2MG PER DAY
     Route: 042
     Dates: start: 20060915, end: 20060921
  2. BEPRICOR [Suspect]
     Indication: DRUG USE FOR UNKNOWN INDICATION
     Dosage: 100MG PER DAY
     Route: 048
     Dates: start: 20060919, end: 20060925

REACTIONS (1)
  - PYREXIA [None]
